FAERS Safety Report 4558340-1 (Version None)
Quarter: 2005Q1

REPORT INFORMATION
  Report Type: 
  Country: None (occurrence: None)
  Receive Date: 20050121
  Receipt Date: 20040517
  Transmission Date: 20050727
  Serious: No
  Sender: FDA-Public Use
  Company Number: US-BRISTOL-MYERS SQUIBB COMPANY-12589560

PATIENT
  Age: 1 Year
  Sex: Female
  Weight: 10 kg

DRUGS (1)
  1. CEFZIL [Suspect]
     Indication: EAR INFECTION
     Route: 048
     Dates: start: 20040511, end: 20040514

REACTIONS (1)
  - DRUG INEFFECTIVE [None]
